FAERS Safety Report 4964876-1 (Version None)
Quarter: 2006Q2

REPORT INFORMATION
  Report Type: 
  Country: None (occurrence: None)
  Receive Date: 20060403
  Receipt Date: 20060321
  Transmission Date: 20061013
  Serious: Yes (Hospitalization, Other)
  Sender: FDA-Public Use
  Company Number: HQWYE426221MAR06

PATIENT
  Age: 3 Year
  Sex: Female

DRUGS (5)
  1. ADVIL [Suspect]
     Indication: COUGH
     Dosage: 120 MG 4X PER 1 DAY ORAL
     Route: 048
     Dates: start: 20060214, end: 20060219
  2. ADVIL [Suspect]
     Indication: PYREXIA
     Dosage: 120 MG 4X PER 1 DAY ORAL
     Route: 048
     Dates: start: 20060214, end: 20060219
  3. ANTARENE ENFANTS ET NOURRISSONS (IBUPROFEN,) [Suspect]
     Indication: COUGH
     Dosage: DOSE FOR 16 KG
     Dates: start: 20060214, end: 20060214
  4. ANTARENE ENFANTS ET NOURRISSONS (IBUPROFEN,) [Suspect]
     Indication: PYREXIA
     Dosage: DOSE FOR 16 KG
     Dates: start: 20060214, end: 20060214
  5. ULTRA-LEVURE (SACCHAROMYCES BOULARDII,) [Suspect]
     Dates: start: 20060215, end: 20060101

REACTIONS (6)
  - ABDOMINAL PAIN [None]
  - C-REACTIVE PROTEIN INCREASED [None]
  - CONDITION AGGRAVATED [None]
  - LUNG DISORDER [None]
  - PLEURAL EFFUSION [None]
  - PNEUMOCOCCAL INFECTION [None]
